FAERS Safety Report 5659739-2 (Version None)
Quarter: 2008Q1

REPORT INFORMATION
  Report Type: 
  Country: None (occurrence: None)
  Receive Date: 20080311
  Receipt Date: 20070709
  Transmission Date: 20080703
  Serious: No
  Sender: FDA-Public Use
  Company Number: US-BAYER-200712166BCC

PATIENT
  Sex: Female
  Weight: 52 kg

DRUGS (6)
  1. ALEVE ARTHRITIS SMOOTH GELS [Suspect]
     Indication: ARTHRITIS
     Dosage: TOTAL DAILY DOSE: 220 MG  UNIT DOSE: 220 MG
     Route: 048
     Dates: start: 20060101
  2. ALLEGRA [Concomitant]
  3. LEVOXYL [Concomitant]
  4. TRIAMTERENE [Concomitant]
  5. ECOTRIN [Concomitant]
  6. DIAVAN [Concomitant]

REACTIONS (1)
  - BLOOD PRESSURE INCREASED [None]
